FAERS Safety Report 8219780-2 (Version None)
Quarter: 2012Q1

REPORT INFORMATION
  Report Type: 
  Country: None (occurrence: None)
  Receive Date: 20120319
  Receipt Date: 20120305
  Transmission Date: 20120608
  Serious: Yes (Death, Hospitalization)
  Sender: FDA-Public Use
  Company Number: SG-MYLANLABS-2012S1005143

PATIENT
  Age: 85 Year
  Sex: Male

DRUGS (1)
  1. ALFUZOSIN HCL [Suspect]
     Indication: BENIGN PROSTATIC HYPERPLASIA
     Route: 065

REACTIONS (4)
  - TOXIC EPIDERMAL NECROLYSIS [None]
  - BACTERAEMIA [None]
  - RENAL FAILURE ACUTE [None]
  - PNEUMONIA [None]
